FAERS Safety Report 20321475 (Version 1)
Quarter: 2022Q1

REPORT INFORMATION
  Report Type: Other
  Country: CA (occurrence: CA)
  Receive Date: 20220111
  Receipt Date: 20220111
  Transmission Date: 20220423
  Serious: Yes (Other)
  Sender: FDA-Public Use
  Company Number: None

PATIENT
  Age: 55 Year
  Sex: Female

DRUGS (31)
  1. ALLOPURINOL [Interacting]
     Active Substance: ALLOPURINOL
     Indication: Rheumatoid arthritis
  2. AMITRIPTYLINE [Interacting]
     Active Substance: AMITRIPTYLINE
     Indication: Rheumatoid arthritis
  3. METHOTREXATE [Interacting]
     Active Substance: METHOTREXATE
     Indication: Rheumatoid arthritis
     Route: 042
  4. HYDROXYCHLOROQUINE SULFATE [Interacting]
     Active Substance: HYDROXYCHLOROQUINE SULFATE
     Indication: Rheumatoid arthritis
  5. PREGABALIN [Interacting]
     Active Substance: PREGABALIN
     Indication: Product used for unknown indication
  6. ACTEMRA [Interacting]
     Active Substance: TOCILIZUMAB
     Indication: Product used for unknown indication
  7. AMITRIPTYLINE\PERPHENAZINE [Interacting]
     Active Substance: AMITRIPTYLINE\PERPHENAZINE
     Indication: Rheumatoid arthritis
  8. AMITRIPTYLINE HYDROCHLORIDE [Interacting]
     Active Substance: AMITRIPTYLINE HYDROCHLORIDE
     Indication: Rheumatoid arthritis
  9. AZATHIOPRINE [Interacting]
     Active Substance: AZATHIOPRINE
     Indication: Product used for unknown indication
  10. DICLOFENAC [Interacting]
     Active Substance: DICLOFENAC
     Indication: Rheumatoid arthritis
     Dosage: SOLUTION TOPICAL
     Route: 061
  11. LEFLUNOMIDE [Interacting]
     Active Substance: LEFLUNOMIDE
     Indication: Product used for unknown indication
  12. NAPROXEN [Interacting]
     Active Substance: NAPROXEN
     Indication: Rheumatoid arthritis
  13. PREDNISONE [Interacting]
     Active Substance: PREDNISONE
     Indication: Rheumatoid arthritis
  14. ARAVA [Interacting]
     Active Substance: LEFLUNOMIDE
     Indication: Product used for unknown indication
  15. CELEBREX [Interacting]
     Active Substance: CELECOXIB
     Indication: Rheumatoid arthritis
  16. CELECOXIB [Interacting]
     Active Substance: CELECOXIB
     Indication: Rheumatoid arthritis
  17. DICLOFENAC POTASSIUM [Interacting]
     Active Substance: DICLOFENAC POTASSIUM
     Indication: Rheumatoid arthritis
  18. DICLOFENAC SODIUM\MISOPROSTOL [Interacting]
     Active Substance: DICLOFENAC SODIUM\MISOPROSTOL
     Indication: Rheumatoid arthritis
  19. ENBREL [Interacting]
     Active Substance: ETANERCEPT
     Indication: Rheumatoid arthritis
     Route: 058
  20. ERELZI [Interacting]
     Active Substance: ETANERCEPT-SZZS
     Indication: Rheumatoid arthritis
  21. HUMIRA [Interacting]
     Active Substance: ADALIMUMAB
     Indication: Rheumatoid arthritis
     Dosage: SOLUTION SUBCUTANEOUS
     Route: 058
  22. LYRICA [Interacting]
     Active Substance: PREGABALIN
     Indication: Rheumatoid arthritis
  23. MISOPROSTOL [Interacting]
     Active Substance: MISOPROSTOL
     Indication: Rheumatoid arthritis
  24. NAPROXEN [Interacting]
     Active Substance: NAPROXEN
     Indication: Rheumatoid arthritis
  25. NIFEDIPINE [Interacting]
     Active Substance: NIFEDIPINE
     Indication: Rheumatoid arthritis
  26. ORENCIA [Interacting]
     Active Substance: ABATACEPT
     Indication: Product used for unknown indication
     Route: 058
  27. RITUXIMAB [Interacting]
     Active Substance: RITUXIMAB
     Indication: Product used for unknown indication
     Route: 042
  28. SULFASALAZINE [Interacting]
     Active Substance: SULFASALAZINE
     Indication: Product used for unknown indication
  29. TOFACITINIB [Interacting]
     Active Substance: TOFACITINIB
     Indication: Product used for unknown indication
  30. PREDNISONE [Interacting]
     Active Substance: PREDNISONE
     Indication: Product used for unknown indication
  31. XELJANZ [Interacting]
     Active Substance: TOFACITINIB CITRATE
     Indication: Rheumatoid arthritis
     Dosage: 2 EVERY 1 DAYS
     Route: 048

REACTIONS (24)
  - Anaphylactic reaction [Not Recovered/Not Resolved]
  - Arthralgia [Not Recovered/Not Resolved]
  - Asthenia [Not Recovered/Not Resolved]
  - Blood cholesterol increased [Not Recovered/Not Resolved]
  - Condition aggravated [Unknown]
  - Disease recurrence [Unknown]
  - Drug ineffective [Unknown]
  - Drug interaction [Unknown]
  - Drug intolerance [Unknown]
  - Gastrooesophageal reflux disease [Not Recovered/Not Resolved]
  - Impaired work ability [Not Recovered/Not Resolved]
  - Malaise [Not Recovered/Not Resolved]
  - Mobility decreased [Not Recovered/Not Resolved]
  - Movement disorder [Not Recovered/Not Resolved]
  - Muscle spasms [Not Recovered/Not Resolved]
  - Pain [Not Recovered/Not Resolved]
  - Pain in jaw [Not Recovered/Not Resolved]
  - Product complaint [Unknown]
  - Rash [Not Recovered/Not Resolved]
  - Rheumatoid arthritis [Not Recovered/Not Resolved]
  - Swelling [Not Recovered/Not Resolved]
  - Synovitis [Not Recovered/Not Resolved]
  - Therapeutic response decreased [Unknown]
  - Wrist deformity [Not Recovered/Not Resolved]
